FAERS Safety Report 6963968-5 (Version None)
Quarter: 2010Q3

REPORT INFORMATION
  Report Type: 
  Country: None (occurrence: None)
  Receive Date: 20100902
  Receipt Date: 20100902
  Transmission Date: 20110219
  Serious: Yes (Life-Threatening)
  Sender: FDA-Public Use
  Company Number: None

PATIENT
  Sex: Female
  Weight: 140.6151 kg

DRUGS (2)
  1. LEVAQUIN [Suspect]
     Indication: CYSTITIS
     Dosage: 1 TABLET DAILY
     Dates: start: 20091015, end: 20091025
  2. LEVAQUIN [Suspect]
     Indication: CYSTITIS
     Dosage: 1 TABLET DAILY
     Dates: start: 20100616, end: 20100621

REACTIONS (2)
  - CYSTITIS [None]
  - TENDON RUPTURE [None]
